FAERS Safety Report 5713686-6 (Version None)
Quarter: 2008Q2

REPORT INFORMATION
  Report Type: 
  Country: None (occurrence: None)
  Receive Date: 20080418
  Receipt Date: 20080408
  Transmission Date: 20081010
  Serious: Yes (Hospitalization)
  Sender: FDA-Public Use
  Company Number: TPG2008A00405

PATIENT
  Age: 72 Year
  Sex: Female

DRUGS (7)
  1. ACTOS [Suspect]
     Indication: TYPE 2 DIABETES MELLITUS
     Dosage: 30 MG PER ORAL
     Route: 048
     Dates: start: 20070808
  2. ACTRAPID     (INSULIN) [Concomitant]
  3. HCT    (HYDROCHLOROTHIAZIDE) [Concomitant]
  4. VIVACE  (MANIDIPINE HYDROCHLORIDE, DELAPRIL HYDROCHLORIDE) [Concomitant]
  5. BISOPROLOL    (BISOPROLOL) [Concomitant]
  6. DIPYRONE TAB [Concomitant]
  7. CARDIAC THERAPY        (CARDIAC THERAPY) [Concomitant]

REACTIONS (4)
  - FALL [None]
  - FOREARM FRACTURE [None]
  - OEDEMA PERIPHERAL [None]
  - PAIN [None]
